FAERS Safety Report 7735333-4 (Version None)
Quarter: 2011Q3

REPORT INFORMATION
  Report Type: 
  Country: None (occurrence: None)
  Receive Date: 20110907
  Receipt Date: 20110825
  Transmission Date: 20111222
  Serious: No
  Sender: FDA-Public Use
  Company Number: US-B.I. PHARMACEUTICALS,INC./RIDGEFIELD-2011-BP-20836BP

PATIENT
  Sex: Female

DRUGS (7)
  1. CARDIZEM [Concomitant]
     Indication: CARDIAC DISORDER
  2. PREVACID [Concomitant]
     Indication: HELICOBACTER GASTRITIS
  3. AMARYL [Concomitant]
     Indication: DIABETES MELLITUS
  4. PRADAXA [Suspect]
     Indication: ATRIAL FIBRILLATION
     Dosage: 300 MG
     Route: 048
     Dates: start: 20110823
  5. TENORMIN [Concomitant]
     Indication: CARDIAC DISORDER
  6. PRILOSEC [Concomitant]
     Indication: HELICOBACTER GASTRITIS
  7. INSULIN [Concomitant]
     Indication: DIABETES MELLITUS
     Route: 058

REACTIONS (2)
  - DYSPEPSIA [None]
  - NERVOUSNESS [None]
